FAERS Safety Report 4682319-2 (Version None)
Quarter: 2005Q2

REPORT INFORMATION
  Report Type: 
  Country: None (occurrence: None)
  Receive Date: 20050606
  Receipt Date: 20050526
  Transmission Date: 20051028
  Serious: Yes (Other)
  Sender: FDA-Public Use
  Company Number: US-JNJFOC-20050600303

PATIENT
  Age: 10 Year
  Sex: Male
  Weight: 36.74 kg

DRUGS (3)
  1. RISPERDAL [Suspect]
     Indication: DRUG THERAPY
     Dosage: AM 0.25 MG  PM  0.50 MG
  2. RISPERDAL [Suspect]
     Indication: AGGRESSION
  3. CONCERTA [Concomitant]

REACTIONS (8)
  - AGGRESSION [None]
  - CRYING [None]
  - CRYPTORCHISM [None]
  - INCREASED APPETITE [None]
  - INTENTIONAL SELF-INJURY [None]
  - PENILE SIZE REDUCED [None]
  - SUICIDE ATTEMPT [None]
  - WEIGHT INCREASED [None]
